FAERS Safety Report 25582518 (Version 2)
Quarter: 2025Q4

REPORT INFORMATION
  Report Type: Spontaneous
  Country: US (occurrence: None)
  Receive Date: 20250720
  Receipt Date: 20251111
  Transmission Date: 20260117
  Serious: Yes (Other)
  Sender: UCB
  Company Number: US-UCBSA-2025044016

PATIENT
  Age: 76 Year

DRUGS (1)
  1. CIMZIA [Suspect]
     Active Substance: CERTOLIZUMAB PEGOL
     Indication: Ankylosing spondylitis
     Dosage: 400 MILLIGRAM, EV 4 WEEKS

REACTIONS (4)
  - Ankylosing spondylitis [Unknown]
  - Intervertebral disc protrusion [Unknown]
  - Insurance issue [Unknown]
  - Therapy interrupted [Unknown]
